FAERS Safety Report 11532284 (Version 2)
Quarter: 2015Q4

REPORT INFORMATION
  Report Type: Spontaneous
  Country: US (occurrence: US)
  Receive Date: 20150921
  Receipt Date: 20151130
  Transmission Date: 20160304
  Serious: Yes (Hospitalization, Other)
  Sender: FDA-Public Use
  Company Number: US-PFIZER INC-2015311611

PATIENT
  Age: 66 Year
  Sex: Male

DRUGS (12)
  1. TESTOSTERONE CIPIONATE [Suspect]
     Active Substance: TESTOSTERONE
     Indication: HORMONE REPLACEMENT THERAPY
     Dosage: UNK, (EVERY TWO WEEKS)
     Dates: start: 20101126, end: 20111019
  2. ANDROGEL [Suspect]
     Active Substance: TESTOSTERONE
     Indication: ASTHENIA
     Dosage: UNK, DAILY
     Dates: start: 20110509, end: 20110901
  3. ANDROGEL [Suspect]
     Active Substance: TESTOSTERONE
     Indication: FATIGUE
  4. DEPO-TESTOSTERONE [Suspect]
     Active Substance: TESTOSTERONE CYPIONATE
     Indication: HORMONE REPLACEMENT THERAPY
     Dosage: UNK
  5. ANDROGEL [Suspect]
     Active Substance: TESTOSTERONE
     Indication: HORMONE REPLACEMENT THERAPY
  6. DEPO-TESTOSTERONE [Suspect]
     Active Substance: TESTOSTERONE CYPIONATE
     Indication: BLOOD TESTOSTERONE DECREASED
  7. TESTOSTERONE CIPIONATE [Suspect]
     Active Substance: TESTOSTERONE
     Indication: BLOOD TESTOSTERONE DECREASED
  8. TESTOSTERONE CIPIONATE [Suspect]
     Active Substance: TESTOSTERONE
     Indication: ASTHENIA
  9. TESTOSTERONE ENANTHATE. [Suspect]
     Active Substance: TESTOSTERONE ENANTHATE
     Indication: ASTHENIA
     Dosage: UNK, (EVERY TWO WEEKS)
     Dates: start: 20120314, end: 20120414
  10. TESTOSTERONE ENANTHATE. [Suspect]
     Active Substance: TESTOSTERONE ENANTHATE
     Indication: HORMONE REPLACEMENT THERAPY
  11. TESTOSTERONE CIPIONATE [Suspect]
     Active Substance: TESTOSTERONE
     Indication: FATIGUE
  12. TESTOSTERONE ENANTHATE. [Suspect]
     Active Substance: TESTOSTERONE ENANTHATE
     Indication: FATIGUE

REACTIONS (2)
  - Aneurysm [Not Recovered/Not Resolved]
  - Myocardial infarction [Unknown]

NARRATIVE: CASE EVENT DATE: 20120927
